FAERS Safety Report 24091986 (Version 1)
Quarter: 2024Q3

REPORT INFORMATION
  Report Type: Spontaneous
  Country: US (occurrence: None)
  Receive Date: 20240715
  Receipt Date: 20240715
  Transmission Date: 20241017
  Serious: No
  Sender: Public
  Company Number: None

PATIENT
  Age: 47 Year
  Sex: Female

DRUGS (4)
  1. COSENTYX [Suspect]
     Active Substance: SECUKINUMAB
     Indication: Psoriatic arthropathy
     Dosage: FREQUENCY : MONTHLY;?
     Route: 058
     Dates: start: 202405
  2. COSENTYX [Suspect]
     Active Substance: SECUKINUMAB
     Indication: Psoriasis
  3. OTEZLA [Concomitant]
     Active Substance: APREMILAST
  4. BUTRANS [Concomitant]
     Active Substance: BUPRENORPHINE

REACTIONS (5)
  - Oropharyngeal pain [None]
  - Malaise [None]
  - Skin mass [None]
  - Hypersensitivity [None]
  - Product use issue [None]
